FAERS Safety Report 5417205-3 (Version None)
Quarter: 2007Q3

REPORT INFORMATION
  Report Type: 
  Country: None (occurrence: None)
  Receive Date: 20070814
  Receipt Date: 20070807
  Transmission Date: 20080115
  Serious: Yes (Life-Threatening, Hospitalization)
  Sender: FDA-Public Use
  Company Number: 163-21880-07041420

PATIENT
  Age: 69 Year
  Sex: Male

DRUGS (3)
  1. REVLIMID [Suspect]
     Indication: MULTIPLE MYELOMA
     Dosage: 25 MG, DAILY 21 ON 7 OFF, ORAL
     Route: 048
     Dates: start: 20070401
  2. DEXAMETHASONE TAB [Concomitant]
  3. PROTONIX [Concomitant]

REACTIONS (1)
  - CARDIAC OPERATION [None]
